FAERS Safety Report 22198757 (Version 3)
Quarter: 2023Q2

REPORT INFORMATION
  Report Type: Spontaneous
  Country: US (occurrence: US)
  Receive Date: 20230411
  Receipt Date: 20230424
  Transmission Date: 20230721
  Serious: Yes (Hospitalization, Other)
  Sender: FDA-Public Use
  Company Number: US-BRISTOL-MYERS SQUIBB COMPANY-2023-047842

PATIENT
  Age: 81 Year
  Sex: Female

DRUGS (1)
  1. REVLIMID [Suspect]
     Active Substance: LENALIDOMIDE
     Indication: 5q minus syndrome
     Dosage: 10 MG, TAKE 1 CAPSULE BY MOUTH DAILY ON DAYS 1-21 OUT OF 28
     Route: 048
     Dates: start: 20230308

REACTIONS (4)
  - Pneumonia [Unknown]
  - Abdominal pain upper [Unknown]
  - Fatigue [Unknown]
  - Off label use [Unknown]
